FAERS Safety Report 24326586 (Version 1)
Quarter: 2024Q3

REPORT INFORMATION
  Report Type: Spontaneous
  Country: US (occurrence: US)
  Receive Date: 20240917
  Receipt Date: 20240917
  Transmission Date: 20241017
  Serious: No
  Sender: SAREPTA THERAPEUTICS
  Company Number: US-SAREPTA THERAPEUTICS INC.-SRP2024-004883

PATIENT
  Age: 14 Year
  Sex: Male
  Weight: 18.69 kg

DRUGS (10)
  1. VYONDYS 53 [Suspect]
     Active Substance: GOLODIRSEN
     Indication: Duchenne muscular dystrophy
     Dosage: 1200 MILLIGRAM, WEEKLY
     Route: 042
     Dates: start: 20200817, end: 20240709
  2. VYONDYS 53 [Suspect]
     Active Substance: GOLODIRSEN
     Dosage: 1200 MILLIGRAM, WEEKLY
     Route: 042
     Dates: start: 20240723
  3. PROZAC [Concomitant]
     Active Substance: FLUOXETINE HYDROCHLORIDE
     Indication: Product used for unknown indication
     Dosage: 25 MILLIGRAM, QD
     Route: 048
     Dates: start: 20200323
  4. PREDNISONE [Concomitant]
     Active Substance: PREDNISONE
     Indication: Product used for unknown indication
     Dosage: 20 MILLIGRAM, QD
     Route: 048
  5. EPINEPHRINE [Concomitant]
     Active Substance: EPINEPHRINE
     Indication: Product used for unknown indication
     Dosage: 0.15 MILLIGRAM, PF 1MG/ML IJ AS DIRECTED, IM OR SUBQ; MAY REPEAT X1 IN 15MIN
     Route: 030
     Dates: start: 20200320
  6. VYVANSE [Concomitant]
     Active Substance: LISDEXAMFETAMINE DIMESYLATE
     Indication: Product used for unknown indication
     Dosage: 10 MILLIGRAM, QD
     Route: 048
     Dates: start: 20200111
  7. FOCALIN XR [Concomitant]
     Active Substance: DEXMETHYLPHENIDATE HYDROCHLORIDE
     Indication: Product used for unknown indication
     Dosage: 5 MILLIGRAM, QD
     Route: 048
     Dates: start: 20200111
  8. TUMS KIDS [Concomitant]
     Indication: Product used for unknown indication
     Dosage: 750 MILLIGRAM, QD
     Route: 048
     Dates: start: 20200111
  9. VITAMINE K2+D3 [Concomitant]
     Indication: Product used for unknown indication
     Dosage: UNK, 100-1000
     Route: 048
     Dates: start: 20200111
  10. CARVEDILOL [Concomitant]
     Active Substance: CARVEDILOL
     Indication: Product used for unknown indication
     Dosage: UNK, 3/125 MG
     Dates: start: 20230821

REACTIONS (2)
  - Intentional dose omission [Unknown]
  - No adverse event [Unknown]

NARRATIVE: CASE EVENT DATE: 20240716
